FAERS Safety Report 8398109-3 (Version None)
Quarter: 2012Q1

REPORT INFORMATION
  Report Type: 
  Country: None (occurrence: None)
  Receive Date: 20120323
  Receipt Date: 20110719
  Transmission Date: 20120608
  Serious: Yes (Other)
  Sender: FDA-Public Use
  Company Number: 163-21880-11011349

PATIENT
  Age: 65 Year
  Sex: Female

DRUGS (7)
  1. DECADRON [Concomitant]
  2. ASPIRIN [Concomitant]
  3. REVLIMID [Suspect]
     Indication: MULTIPLE MYELOMA
     Dosage: 5;10 MG, DAILY X 21 DAYS Q 28 DAYS, Q 28 DAYS, PO
     Route: 048
     Dates: start: 20110104
  4. REVLIMID [Suspect]
     Indication: MULTIPLE MYELOMA
     Dosage: 5;10 MG, DAILY X 21 DAYS Q 28 DAYS, Q 28 DAYS, PO
     Route: 048
     Dates: start: 20101116
  5. REVLIMID [Suspect]
     Indication: MULTIPLE MYELOMA
     Dosage: 5;10 MG, DAILY X 21 DAYS Q 28 DAYS, Q 28 DAYS, PO
     Route: 048
     Dates: start: 20110127, end: 20110516
  6. OMEPRAZOLE [Concomitant]
  7. BENAZEPRIL HYDROCHLORIDE [Concomitant]

REACTIONS (4)
  - MULTIPLE MYELOMA [None]
  - BONE MARROW FAILURE [None]
  - THROMBOCYTOPENIA [None]
  - PAIN [None]
